FAERS Safety Report 9498249 (Version 1)
Quarter: 2013Q3

REPORT INFORMATION
  Report Type: Spontaneous
  Country: PL (occurrence: PL)
  Receive Date: 20130904
  Receipt Date: 20130904
  Transmission Date: 20140515
  Serious: Yes (Death, Hospitalization)
  Sender: FDA-Public Use
  Company Number: PL-ACTELION-A-CH2013-87888

PATIENT
  Age: 58 Year
  Sex: Female
  Weight: 40 kg

DRUGS (3)
  1. TRACLEER [Suspect]
     Indication: PULMONARY ARTERIAL HYPERTENSION
     Dosage: 62.5 MG, BID
     Route: 048
     Dates: start: 201112, end: 20130810
  2. SILDENAFIL [Concomitant]
     Dosage: UNK
     Dates: start: 2000
  3. ACENOCUMAROL [Concomitant]
     Dosage: UNK
     Dates: start: 2000

REACTIONS (2)
  - Cardiac failure [Fatal]
  - Urinary tract infection [Unknown]
